FAERS Safety Report 6733356-5 (Version None)
Quarter: 2010Q2

REPORT INFORMATION
  Report Type: 
  Country: None (occurrence: None)
  Receive Date: 20100520
  Receipt Date: 20100511
  Transmission Date: 20101027
  Serious: Yes (Other)
  Sender: FDA-Public Use
  Company Number: US-PFIZER INC-2010059899

PATIENT
  Sex: Female
  Weight: 15 kg

DRUGS (9)
  1. LYRICA [Suspect]
     Indication: QUADRIPLEGIA
     Dosage: 75 MG, 2X/DAY
     Route: 048
     Dates: start: 20100401, end: 20100501
  2. DETROL LA [Concomitant]
     Dosage: UNK
  3. GABAPENTIN [Concomitant]
     Dosage: UNK
  4. BACLOFEN [Concomitant]
     Dosage: UNK
  5. CYMBALTA [Concomitant]
     Dosage: UNK
  6. MACROBID [Concomitant]
     Indication: CYSTITIS
     Dosage: UNK
  7. OXYCONTIN [Concomitant]
     Dosage: UNK
  8. VICODIN [Concomitant]
     Dosage: UNK
  9. DIAZEPAM [Concomitant]
     Dosage: UNK

REACTIONS (9)
  - DIPLOPIA [None]
  - DIZZINESS [None]
  - DRY MOUTH [None]
  - DYSPHAGIA [None]
  - HYPERTONIC BLADDER [None]
  - PHARYNGEAL OEDEMA [None]
  - PHOTOPHOBIA [None]
  - SALIVARY HYPERSECRETION [None]
  - VISION BLURRED [None]
